FAERS Safety Report 4459231-7 (Version None)
Quarter: 2004Q3

REPORT INFORMATION
  Report Type: 
  Country: None (occurrence: None)
  Receive Date: 20040923
  Receipt Date: 20040923
  Transmission Date: 20050211
  Serious: Yes (Hospitalization)
  Sender: FDA-Public Use
  Company Number: None

PATIENT
  Age: 24 Year
  Sex: Male

DRUGS (1)
  1. ALTEPLASE [Suspect]
     Dosage: 0.13CC  0.13 SECOND DOSE

REACTIONS (1)
  - CHEST DISCOMFORT [None]
